FAERS Safety Report 20735115 (Version 3)
Quarter: 2022Q2

REPORT INFORMATION
  Report Type: Spontaneous
  Country: ES (occurrence: ES)
  Receive Date: 20220421
  Receipt Date: 20220613
  Transmission Date: 20220721
  Serious: Yes (Other)
  Sender: FDA-Public Use
  Company Number: None

PATIENT
  Age: 56 Year
  Sex: Female

DRUGS (3)
  1. PREGABALIN [Suspect]
     Active Substance: PREGABALIN
     Indication: Anxiety
     Dosage: 300 MG (30 CAPSULE WAS REPORTED, PENDING CLARIFICATION)
     Route: 055
     Dates: start: 20210719, end: 20210719
  2. ENALAPRIL MALEATE\HYDROCHLOROTHIAZIDE [Suspect]
     Active Substance: ENALAPRIL MALEATE\HYDROCHLOROTHIAZIDE
     Indication: Hypertension
     Dosage: 1 AT MORNING
     Route: 048
     Dates: start: 20190301, end: 20210719
  3. LACOSAMIDE [Concomitant]
     Active Substance: LACOSAMIDE
     Dosage: UNK

REACTIONS (9)
  - Product use issue [Recovering/Resolving]
  - Off label use [Recovering/Resolving]
  - Drug dependence [Recovering/Resolving]
  - Hyponatraemia [Recovered/Resolved]
  - Seizure [Recovered/Resolved]
  - Suicidal ideation [Unknown]
  - Loss of consciousness [Unknown]
  - Muscle rigidity [Unknown]
  - Overdose [Unknown]

NARRATIVE: CASE EVENT DATE: 20210719
